FAERS Safety Report 12257336 (Version 1)
Quarter: 2016Q2

REPORT INFORMATION
  Report Type: Spontaneous
  Country: US (occurrence: US)
  Receive Date: 20160412
  Receipt Date: 20160412
  Transmission Date: 20160815
  Serious: Yes (Hospitalization)
  Sender: FDA-Public Use
  Company Number: US-PROCTER_AND_GAMBLE-GS16040862

PATIENT
  Age: 27 Year
  Sex: Male

DRUGS (3)
  1. OLD SPICE WILD COLLECTION WOLFTHORN INVISIBLE [Suspect]
     Active Substance: ALUMINUM ZIRCONIUM TRICHLOROHYDREX GLY
     Dosage: 2-3 SWIPES PER ARM, 1-2 TIMES DAILY
     Route: 061
  2. OLD SPICE HIGH ENDURANCE PURE SPORT (ALUMINUM ZIRCONIUM TRICHLOROHYDREX GLY) [Suspect]
     Active Substance: ALUMINUM ZIRCONIUM TRICHLOROHYDREX GLY
     Dosage: 2-3 SWIPES PER ARM, 1-2 TIMES DAILY
     Route: 061
  3. OLDSPICEAPDO+BSPRAY [Suspect]
     Active Substance: ALUMINUM CHLOROHYDRATE OR ALUMINUM ZIRCONIUM TETRACHLOROHYDREX GLY
     Dosage: 2-3 SWIPES PER ARM, 1-2 TIMES DAILY
     Route: 061

REACTIONS (14)
  - Pruritus [Recovered/Resolved]
  - Skin irritation [Unknown]
  - Rash [Recovered/Resolved]
  - Impaired work ability [None]
  - Furuncle [Recovered/Resolved]
  - Erythema [Recovered/Resolved]
  - Skin infection [Recovered/Resolved]
  - Subcutaneous abscess [Recovered/Resolved]
  - Movement disorder [Not Recovered/Not Resolved]
  - Dry skin [None]
  - Skin disorder [Recovered/Resolved]
  - Axillary pain [Recovering/Resolving]
  - Discomfort [Recovering/Resolving]
  - Skin swelling [Recovered/Resolved]
